FAERS Safety Report 25392087 (Version 1)
Quarter: 2025Q2

REPORT INFORMATION
  Report Type: Spontaneous
  Country: FR (occurrence: FR)
  Receive Date: 20250603
  Receipt Date: 20250603
  Transmission Date: 20250717
  Serious: Yes (Hospitalization)
  Sender: MYLAN
  Company Number: None

PATIENT
  Age: 29 Year
  Sex: Female

DRUGS (16)
  1. TRAMADOL [Suspect]
     Active Substance: TRAMADOL
     Indication: Product used for unknown indication
     Dosage: 6 PER DAY ON AVERAGE
  2. TRAMADOL [Suspect]
     Active Substance: TRAMADOL
     Dosage: 6 PER DAY ON AVERAGE
     Route: 048
  3. TRAMADOL [Suspect]
     Active Substance: TRAMADOL
     Dosage: 6 PER DAY ON AVERAGE
     Route: 048
  4. TRAMADOL [Suspect]
     Active Substance: TRAMADOL
     Dosage: 6 PER DAY ON AVERAGE
  5. FLUOXETINE [Suspect]
     Active Substance: FLUOXETINE HYDROCHLORIDE
     Indication: Product used for unknown indication
     Dosage: 50 MILLIGRAM, QD (IN THE MORNING)
  6. FLUOXETINE [Suspect]
     Active Substance: FLUOXETINE HYDROCHLORIDE
     Dosage: 50 MILLIGRAM, QD (IN THE MORNING)
     Route: 048
  7. FLUOXETINE [Suspect]
     Active Substance: FLUOXETINE HYDROCHLORIDE
     Dosage: 50 MILLIGRAM, QD (IN THE MORNING)
     Route: 048
  8. FLUOXETINE [Suspect]
     Active Substance: FLUOXETINE HYDROCHLORIDE
     Dosage: 50 MILLIGRAM, QD (IN THE MORNING)
  9. MIRTAZAPINE [Suspect]
     Active Substance: MIRTAZAPINE
     Indication: Product used for unknown indication
     Dosage: 45 MILLIGRAM, QD (3X15MG PER DAY IN THE MORNING)
  10. MIRTAZAPINE [Suspect]
     Active Substance: MIRTAZAPINE
     Dosage: 45 MILLIGRAM, QD (3X15MG PER DAY IN THE MORNING)
     Route: 048
  11. MIRTAZAPINE [Suspect]
     Active Substance: MIRTAZAPINE
     Dosage: 45 MILLIGRAM, QD (3X15MG PER DAY IN THE MORNING)
     Route: 048
  12. MIRTAZAPINE [Suspect]
     Active Substance: MIRTAZAPINE
     Dosage: 45 MILLIGRAM, QD (3X15MG PER DAY IN THE MORNING)
  13. ACUPAN [Suspect]
     Active Substance: NEFOPAM HYDROCHLORIDE
     Indication: Product used for unknown indication
     Dosage: 3 TO 4 BOXES OF 5 AMPOULES/DAY (AMPOULE)
     Dates: start: 2024
  14. ACUPAN [Suspect]
     Active Substance: NEFOPAM HYDROCHLORIDE
     Dosage: 3 TO 4 BOXES OF 5 AMPOULES/DAY (AMPOULE)
     Route: 065
     Dates: start: 2024
  15. ACUPAN [Suspect]
     Active Substance: NEFOPAM HYDROCHLORIDE
     Dosage: 3 TO 4 BOXES OF 5 AMPOULES/DAY (AMPOULE)
     Route: 065
     Dates: start: 2024
  16. ACUPAN [Suspect]
     Active Substance: NEFOPAM HYDROCHLORIDE
     Dosage: 3 TO 4 BOXES OF 5 AMPOULES/DAY (AMPOULE)
     Dates: start: 2024

REACTIONS (2)
  - Drug detoxification [Recovered/Resolved]
  - Intentional product misuse [Unknown]

NARRATIVE: CASE EVENT DATE: 20250509
